FAERS Safety Report 9011733 (Version 1)
Quarter: 2013Q1

REPORT INFORMATION
  Report Type: Spontaneous
  Country: US (occurrence: US)
  Receive Date: 20130114
  Receipt Date: 20130114
  Transmission Date: 20140127
  Serious: Yes (Other)
  Sender: FDA-Public Use
  Company Number: US-009507513-1301USA003122

PATIENT
  Age: 87 Year
  Sex: Male

DRUGS (8)
  1. DULERA [Suspect]
     Indication: ASTHMA
     Dosage: 100MCG/5MCG, 2 PUFFS TWICE DAILY
     Route: 055
     Dates: start: 2011
  2. DULERA [Suspect]
     Dosage: 100MCG/5MCG, 1 PUFF TWICE DAILY
     Route: 055
  3. LASIX (FUROSEMIDE) [Concomitant]
  4. COREG [Concomitant]
  5. LISITRIL [Concomitant]
  6. POTASSIUM (UNSPECIFIED) [Concomitant]
  7. LEVOTHYROXINE SODIUM [Concomitant]
  8. ASPIRIN [Concomitant]

REACTIONS (1)
  - Aphonia [Not Recovered/Not Resolved]
